FAERS Safety Report 17846764 (Version 4)
Quarter: 2021Q4

REPORT INFORMATION
  Report Type: Report from Study
  Country: US (occurrence: US)
  Receive Date: 20200601
  Receipt Date: 20211122
  Transmission Date: 20220303
  Serious: Yes (Other)
  Sender: FDA-Public Use
  Company Number: US-SHIRE-US202017765

PATIENT
  Sex: Female

DRUGS (1)
  1. HUMAN IMMUNOGLOBULIN G [Suspect]
     Active Substance: HUMAN IMMUNOGLOBULIN G
     Indication: Selective IgG subclass deficiency
     Route: 065

REACTIONS (5)
  - Pneumonia [Unknown]
  - COVID-19 [Recovering/Resolving]
  - Vaccination complication [Unknown]
  - Skin swelling [Unknown]
  - Chest discomfort [Unknown]
